FAERS Safety Report 12103368 (Version 3)
Quarter: 2016Q1

REPORT INFORMATION
  Report Type: Spontaneous
  Country: US (occurrence: US)
  Receive Date: 20160222
  Receipt Date: 20160314
  Transmission Date: 20160526
  Serious: No
  Sender: FDA-Public Use
  Company Number: US-HOSPIRA-3173396

PATIENT
  Age: 37 Year
  Sex: Male

DRUGS (3)
  1. LIDOCAINE HYDROCHLORIDE WITH EPINEPHRINE [Suspect]
     Active Substance: EPINEPHRINE\LIDOCAINE HYDROCHLORIDE
     Indication: BIOPSY
  2. SODIUM HYDROGEN CARBONATE [Suspect]
     Active Substance: SODIUM BICARBONATE
     Indication: BIOPSY
  3. LIDOCAINE HYDROCHLORIDE WITH EPINEPHRINE [Suspect]
     Active Substance: EPINEPHRINE\LIDOCAINE HYDROCHLORIDE
     Indication: BIOPSY

REACTIONS (5)
  - Urticaria [Recovered/Resolved]
  - Erythema [Recovered/Resolved]
  - Discomfort [Recovered/Resolved]
  - Swelling [Recovered/Resolved]
  - Chest pain [Recovered/Resolved]

NARRATIVE: CASE EVENT DATE: 20160210
